FAERS Safety Report 5969163-0 (Version None)
Quarter: 2008Q4

REPORT INFORMATION
  Report Type: 
  Country: None (occurrence: None)
  Receive Date: 20081126
  Receipt Date: 20081117
  Transmission Date: 20090506
  Serious: Yes (Other)
  Sender: FDA-Public Use
  Company Number: TN-WATSON-2008-06806

PATIENT
  Age: 28 Year
  Sex: Female

DRUGS (2)
  1. ACYCLOVIR [Suspect]
     Indication: PROPHYLAXIS
     Dosage: 420 MG, 30 MINUTE INFUSION Q12H IN 500ML GLUCOSALINE 5%
     Route: 042
  2. ONDANSETRON [Suspect]
     Indication: DRUG USE FOR UNKNOWN INDICATION

REACTIONS (1)
  - COMA [None]
